FAERS Safety Report 22871791 (Version 3)
Quarter: 2024Q1

REPORT INFORMATION
  Report Type: Spontaneous
  Country: US (occurrence: US)
  Receive Date: 20230828
  Receipt Date: 20240221
  Transmission Date: 20240410
  Serious: No
  Sender: FDA-Public Use
  Company Number: US-BRISTOL-MYERS SQUIBB COMPANY-2023-120661

PATIENT
  Age: 50 Year
  Sex: Female

DRUGS (1)
  1. ZEPOSIA [Suspect]
     Active Substance: OZANIMOD HYDROCHLORIDE
     Indication: Multiple sclerosis
     Route: 048
     Dates: start: 202302

REACTIONS (10)
  - Headache [Unknown]
  - Confusional state [Unknown]
  - Brain fog [Unknown]
  - Pain [Unknown]
  - Eye pain [Unknown]
  - Depression [Unknown]
  - Fatigue [Unknown]
  - Fall [Unknown]
  - Drug ineffective [Unknown]
  - Multiple sclerosis relapse [Unknown]
